FAERS Safety Report 7626285-6 (Version None)
Quarter: 2011Q3

REPORT INFORMATION
  Report Type: 
  Country: None (occurrence: None)
  Receive Date: 20110721
  Receipt Date: 20110712
  Transmission Date: 20111222
  Serious: Yes (Life-Threatening, Hospitalization, Other)
  Sender: FDA-Public Use
  Company Number: US-ACTELION-A-US2011-49086

PATIENT

DRUGS (4)
  1. CALCIUM CHANNEL BLOCKERS [Concomitant]
  2. TRACLEER [Suspect]
     Dosage: 62.5 MG, BID
     Route: 048
  3. COUMADIN [Concomitant]
  4. TRACLEER [Suspect]
     Indication: PULMONARY ARTERIAL HYPERTENSION
     Dosage: 125
     Route: 048

REACTIONS (7)
  - MITRAL VALVE REPLACEMENT [None]
  - DIZZINESS [None]
  - OEDEMA [None]
  - MITRAL VALVE STENOSIS [None]
  - DYSPNOEA [None]
  - NASOPHARYNGITIS [None]
  - INFECTION [None]
